FAERS Safety Report 19231491 (Version 1)
Quarter: 2021Q2

REPORT INFORMATION
  Report Type: Spontaneous
  Country: US (occurrence: US)
  Receive Date: 20210507
  Receipt Date: 20210507
  Transmission Date: 20210717
  Serious: No
  Sender: FDA-Public Use
  Company Number: US-MATRIXX INITIATIVES, INC.-2110332

PATIENT
  Age: 43 Year
  Sex: Male
  Weight: 99.55 kg

DRUGS (1)
  1. ZICAM COLD REMEDY LOZENGES [Suspect]
     Active Substance: HOMEOPATHICS\ZINC ACETATE\ZINC GLUCONATE
     Indication: NASOPHARYNGITIS
     Route: 048
     Dates: start: 20210505, end: 20210506

REACTIONS (1)
  - Ageusia [None]
